FAERS Safety Report 19004766 (Version 5)
Quarter: 2022Q1

REPORT INFORMATION
  Report Type: Report from Study
  Country: CN (occurrence: None)
  Receive Date: 20210312
  Receipt Date: 20220329
  Transmission Date: 20220423
  Serious: Yes (Hospitalization)
  Sender: FDA-Public Use
  Company Number: 2020SE94654

PATIENT
  Age: 18152 Day
  Sex: Female

DRUGS (60)
  1. DURVALUMAB [Suspect]
     Active Substance: DURVALUMAB
     Indication: Cervix carcinoma
     Route: 042
     Dates: start: 20200630, end: 20200630
  2. DURVALUMAB [Suspect]
     Active Substance: DURVALUMAB
     Indication: Cervix carcinoma
     Route: 042
     Dates: start: 20200806, end: 20200806
  3. DURVALUMAB [Suspect]
     Active Substance: DURVALUMAB
     Indication: Cervix carcinoma
     Route: 042
     Dates: start: 20200902, end: 20200902
  4. DURVALUMAB [Suspect]
     Active Substance: DURVALUMAB
     Indication: Cervix carcinoma
     Route: 042
     Dates: start: 20200928, end: 20200928
  5. DURVALUMAB [Suspect]
     Active Substance: DURVALUMAB
     Indication: Cervix carcinoma
     Route: 042
     Dates: start: 20201028, end: 20201028
  6. DURVALUMAB [Suspect]
     Active Substance: DURVALUMAB
     Indication: Cervix carcinoma
     Route: 042
     Dates: start: 20201124, end: 20201124
  7. DURVALUMAB [Suspect]
     Active Substance: DURVALUMAB
     Indication: Cervix carcinoma
     Route: 042
     Dates: start: 20201224, end: 20201224
  8. DURVALUMAB [Suspect]
     Active Substance: DURVALUMAB
     Indication: Cervix carcinoma
     Route: 042
     Dates: start: 20210121, end: 20210121
  9. DURVALUMAB [Suspect]
     Active Substance: DURVALUMAB
     Indication: Cervix carcinoma
     Route: 042
     Dates: start: 20210219, end: 20210219
  10. DURVALUMAB [Suspect]
     Active Substance: DURVALUMAB
     Indication: Cervix carcinoma
     Route: 042
     Dates: start: 20210319, end: 20210319
  11. DURVALUMAB [Suspect]
     Active Substance: DURVALUMAB
     Indication: Cervix carcinoma
     Route: 042
     Dates: start: 20210428, end: 20210428
  12. DURVALUMAB [Suspect]
     Active Substance: DURVALUMAB
     Indication: Cervix carcinoma
     Route: 042
     Dates: start: 20210528, end: 20210528
  13. CISPLATIN [Suspect]
     Active Substance: CISPLATIN
     Indication: Cervix carcinoma
     Route: 042
     Dates: start: 20200630, end: 20200630
  14. CISPLATIN [Suspect]
     Active Substance: CISPLATIN
     Indication: Cervix carcinoma
     Route: 042
     Dates: start: 20200707, end: 20200707
  15. CISPLATIN [Suspect]
     Active Substance: CISPLATIN
     Indication: Cervix carcinoma
     Route: 042
     Dates: start: 20200714, end: 20200714
  16. CISPLATIN [Suspect]
     Active Substance: CISPLATIN
     Indication: Cervix carcinoma
     Route: 042
     Dates: start: 20200806, end: 20200806
  17. CISPLATIN [Suspect]
     Active Substance: CISPLATIN
     Indication: Cervix carcinoma
     Route: 042
     Dates: start: 20200820, end: 20200820
  18. CALCIUM GLUCONATE\DEXTROSE\MAGNESIUM CHLORIDE\POTASSIUM CHLORIDE\SODIU [Concomitant]
     Active Substance: CALCIUM GLUCONATE\DEXTROSE\MAGNESIUM CHLORIDE\POTASSIUM CHLORIDE\SODIUM ACETATE\SODIUM CHLORIDE\TRIS
     Indication: Electrolyte substitution therapy
     Dosage: 500.0ML ONCE/SINGLE ADMINISTRATION
     Route: 042
     Dates: start: 20200630, end: 20200630
  19. CALCIUM GLUCONATE\DEXTROSE\MAGNESIUM CHLORIDE\POTASSIUM CHLORIDE\SODIU [Concomitant]
     Active Substance: CALCIUM GLUCONATE\DEXTROSE\MAGNESIUM CHLORIDE\POTASSIUM CHLORIDE\SODIUM ACETATE\SODIUM CHLORIDE\TRIS
     Indication: Electrocution
     Dosage: 500.0ML ONCE/SINGLE ADMINISTRATION
     Route: 042
     Dates: start: 20200630, end: 20200630
  20. CALCIUM GLUCONATE\DEXTROSE\MAGNESIUM CHLORIDE\POTASSIUM CHLORIDE\SODIU [Concomitant]
     Active Substance: CALCIUM GLUCONATE\DEXTROSE\MAGNESIUM CHLORIDE\POTASSIUM CHLORIDE\SODIUM ACETATE\SODIUM CHLORIDE\TRIS
     Indication: Electrolyte substitution therapy
     Dosage: 500.0ML ONCE/SINGLE ADMINISTRATION
     Route: 042
     Dates: start: 20200707, end: 20200707
  21. CALCIUM GLUCONATE\DEXTROSE\MAGNESIUM CHLORIDE\POTASSIUM CHLORIDE\SODIU [Concomitant]
     Active Substance: CALCIUM GLUCONATE\DEXTROSE\MAGNESIUM CHLORIDE\POTASSIUM CHLORIDE\SODIUM ACETATE\SODIUM CHLORIDE\TRIS
     Indication: Electrocution
     Dosage: 500.0ML ONCE/SINGLE ADMINISTRATION
     Route: 042
     Dates: start: 20200707, end: 20200707
  22. CALCIUM GLUCONATE\DEXTROSE\MAGNESIUM CHLORIDE\POTASSIUM CHLORIDE\SODIU [Concomitant]
     Active Substance: CALCIUM GLUCONATE\DEXTROSE\MAGNESIUM CHLORIDE\POTASSIUM CHLORIDE\SODIUM ACETATE\SODIUM CHLORIDE\TRIS
     Indication: Electrolyte substitution therapy
     Dosage: 500.0ML ONCE/SINGLE ADMINISTRATION
     Route: 042
     Dates: start: 20200714, end: 20200714
  23. CALCIUM GLUCONATE\DEXTROSE\MAGNESIUM CHLORIDE\POTASSIUM CHLORIDE\SODIU [Concomitant]
     Active Substance: CALCIUM GLUCONATE\DEXTROSE\MAGNESIUM CHLORIDE\POTASSIUM CHLORIDE\SODIUM ACETATE\SODIUM CHLORIDE\TRIS
     Indication: Electrocution
     Dosage: 500.0ML ONCE/SINGLE ADMINISTRATION
     Route: 042
     Dates: start: 20200714, end: 20200714
  24. POTASSIUM CHLORIDE [Concomitant]
     Active Substance: POTASSIUM CHLORIDE
     Indication: Electrocution
     Dosage: 1.5G ONCE/SINGLE ADMINISTRATION
     Route: 042
     Dates: start: 20200630, end: 20200630
  25. POTASSIUM CHLORIDE [Concomitant]
     Active Substance: POTASSIUM CHLORIDE
     Indication: Electrocution
     Dosage: 1.5G ONCE/SINGLE ADMINISTRATION
     Route: 042
     Dates: start: 20200707, end: 20200707
  26. POTASSIUM CHLORIDE [Concomitant]
     Active Substance: POTASSIUM CHLORIDE
     Indication: Electrocution
     Dosage: 1.5G ONCE/SINGLE ADMINISTRATION
     Route: 042
     Dates: start: 20200714, end: 20200714
  27. POTASSIUM CHLORIDE [Concomitant]
     Active Substance: POTASSIUM CHLORIDE
     Indication: Electrocution
     Dosage: 1.5G ONCE/SINGLE ADMINISTRATION
     Route: 042
     Dates: start: 20200724, end: 20200724
  28. METRONIDAZOLE,VITAMIN E AND TOTAL GINSENOSID OF GINSENG STEMS AND L... [Concomitant]
     Indication: Cervix carcinoma
     Route: 067
     Dates: start: 20200604, end: 20200715
  29. METRONIDAZOLE,VITAMIN E AND TOTAL GINSENOSID OF GINSENG STEMS AND L... [Concomitant]
     Indication: Infection prophylaxis
     Route: 067
     Dates: start: 20200604, end: 20200715
  30. ONDANSETRON HYDROCHLORIDE [Concomitant]
     Active Substance: ONDANSETRON HYDROCHLORIDE
     Indication: Nausea
     Route: 048
     Dates: start: 20200630, end: 20200709
  31. PALONOSETRON HYDROCHLORIDE [Concomitant]
     Active Substance: PALONOSETRON HYDROCHLORIDE
     Indication: Nausea
     Dosage: 250.0UG/INHAL ONCE/SINGLE ADMINISTRATION
     Route: 042
     Dates: start: 20200707, end: 20200707
  32. PALONOSETRON HYDROCHLORIDE [Concomitant]
     Active Substance: PALONOSETRON HYDROCHLORIDE
     Indication: Prophylaxis of nausea and vomiting
     Dosage: 250.0UG/INHAL ONCE/SINGLE ADMINISTRATION
     Route: 042
     Dates: start: 20200707, end: 20200707
  33. PALONOSETRON HYDROCHLORIDE [Concomitant]
     Active Substance: PALONOSETRON HYDROCHLORIDE
     Indication: Nausea
     Dosage: 250.0UG/INHAL ONCE/SINGLE ADMINISTRATION
     Route: 042
     Dates: start: 20200714, end: 20200714
  34. PALONOSETRON HYDROCHLORIDE [Concomitant]
     Active Substance: PALONOSETRON HYDROCHLORIDE
     Indication: Prophylaxis of nausea and vomiting
     Dosage: 250.0UG/INHAL ONCE/SINGLE ADMINISTRATION
     Route: 042
     Dates: start: 20200714, end: 20200714
  35. RECOMBINANT HUMAN GRANULOCYTE STIMULATING FACTOR INJECTION [Concomitant]
     Indication: White blood cell count decreased
     Dosage: 300UG/INHAL DAILY
     Route: 058
     Dates: start: 20200711, end: 20200712
  36. RECOMBINANT HUMAN GRANULOCYTE COLONY-STIMULATING FACTOR INJECTION [Concomitant]
     Indication: White blood cell count decreased
     Dosage: 300UG/INHAL DAILY
     Route: 058
     Dates: start: 20200718, end: 20200719
  37. RECOMBINANT HUMAN GRANULOCYTE COLONY-STIMULATING FACTOR INJECTION [Concomitant]
     Indication: Neutrophil count
     Dosage: 300UG/INHAL DAILY
     Route: 058
     Dates: start: 20200718, end: 20200719
  38. RECOMBINANT HUMAN GRANULOCYTE COLONY-STIMULATING FACTOR INJECTION [Concomitant]
     Indication: White blood cell count decreased
     Dosage: 300UG/INHAL DAILY
     Route: 058
     Dates: start: 20200722, end: 20200723
  39. RECOMBINANT HUMAN GRANULOCYTE COLONY-STIMULATING FACTOR INJECTION [Concomitant]
     Indication: Neutrophil count
     Dosage: 300UG/INHAL DAILY
     Route: 058
     Dates: start: 20200722, end: 20200723
  40. RECOMBINANT HUMAN GRANULOCYTE COLONY-STIMULATING FACTOR INJECTION [Concomitant]
     Indication: White blood cell count decreased
     Dosage: 300UG/INHAL DAILY
     Route: 058
     Dates: start: 20200727, end: 20200728
  41. RECOMBINANT HUMAN GRANULOCYTE COLONY-STIMULATING FACTOR INJECTION [Concomitant]
     Indication: Neutrophil count
     Dosage: 300UG/INHAL DAILY
     Route: 058
     Dates: start: 20200727, end: 20200728
  42. RECOMBINANT HUMAN GRANULOCYTE COLONY-STIMULATING FACTOR INJECTION [Concomitant]
     Indication: White blood cell count decreased
     Dosage: 300UG/INHAL DAILY
     Route: 058
     Dates: start: 20200730, end: 20200804
  43. RECOMBINANT HUMAN GRANULOCYTE COLONY-STIMULATING FACTOR INJECTION [Concomitant]
     Indication: Neutrophil count
     Dosage: 300UG/INHAL DAILY
     Route: 058
     Dates: start: 20200730, end: 20200804
  44. RECOMBINANT HUMAN INTERLEUKIN-11 FOR INJECTION [Concomitant]
     Indication: Platelet count decreased
     Route: 058
     Dates: start: 20200724, end: 20200726
  45. GLUCOSE AND SODIUM CHLORIDE INJECTION [Concomitant]
     Indication: Electrocution
     Dosage: 500.0ML ONCE/SINGLE ADMINISTRATION
     Route: 042
     Dates: start: 20200724, end: 20200724
  46. SODIUM POTASSIUM MAGNESIUM CALCIUN AND GLUCOSE INJECTION [Concomitant]
     Indication: Electrocution
     Dosage: 500.0ML ONCE/SINGLE ADMINISTRATION
     Route: 042
     Dates: start: 20200724, end: 20200724
  47. SODIUM POTASSIUM MAGNESIUM CALCIUN AND GLUCOSE INJECTION [Concomitant]
     Indication: Supportive care
     Dosage: 500.0ML ONCE/SINGLE ADMINISTRATION
     Route: 042
     Dates: start: 20200724, end: 20200724
  48. SODIUM POTASSIUM MAGNESIUM CALCIUN AND GLUCOSE INJECTION [Concomitant]
     Indication: Electrocution
     Dosage: 500.0ML ONCE/SINGLE ADMINISTRATION
     Route: 042
     Dates: start: 20200727, end: 20200727
  49. SODIUM POTASSIUM MAGNESIUM CALCIUN AND GLUCOSE INJECTION [Concomitant]
     Indication: Supportive care
     Dosage: 500.0ML ONCE/SINGLE ADMINISTRATION
     Route: 042
     Dates: start: 20200727, end: 20200727
  50. SHENGBAI ORAL LIQUID [Concomitant]
     Indication: White blood cell count
     Route: 048
     Dates: start: 20200726, end: 20200902
  51. CAFFEIC ACID TABLETS [Concomitant]
     Indication: Platelet count decreased
     Route: 048
     Dates: start: 20200725, end: 20200902
  52. SHENGXUEBAO MIXTURE [Concomitant]
     Indication: Anaemia
     Route: 048
     Dates: start: 20200727, end: 20200902
  53. ASCORBIC ACID [Concomitant]
     Active Substance: ASCORBIC ACID
     Indication: Vitamin supplementation
     Route: 042
     Dates: start: 20200727, end: 20200727
  54. COENZYME COMPLEX FOR INJECTION [Concomitant]
     Indication: White blood cell count
     Dosage: 200.0 OTHER EVERY DAY
     Route: 042
     Dates: start: 20200727, end: 20200727
  55. COENZYME COMPLEX FOR INJECTION [Concomitant]
     Indication: White blood cell count decreased
     Dosage: 200.0 OTHER EVERY DAY
     Route: 042
     Dates: start: 20200727, end: 20200727
  56. PIPERACILLIN SODIUM AND TAZOBACTAM SODIUM FOR INJECTION [Concomitant]
     Indication: Infection
     Route: 042
     Dates: start: 20200730, end: 20200805
  57. LYSINE ACETYLSALICYLATE FOR INJECTION [Concomitant]
     Indication: Hypothermia
     Dosage: 0.9G ONCE/SINGLE ADMINISTRATION
     Route: 030
     Dates: start: 20200730, end: 20200730
  58. ONDANSETRON HYDROCHLORIDE [Concomitant]
     Active Substance: ONDANSETRON HYDROCHLORIDE
     Indication: Nausea
     Route: 048
     Dates: start: 20200730, end: 20200808
  59. ONDANSETRON HYDROCHLORIDE [Concomitant]
     Active Substance: ONDANSETRON HYDROCHLORIDE
     Indication: Prophylaxis
     Route: 048
     Dates: start: 20200730, end: 20200808
  60. HYDROLYSATE [Concomitant]
     Indication: Anaemia

REACTIONS (2)
  - Urinary tract infection [Recovered/Resolved]
  - Myelosuppression [Recovered/Resolved]

NARRATIVE: CASE EVENT DATE: 20200727
